FAERS Safety Report 13428052 (Version 1)
Quarter: 2017Q2

REPORT INFORMATION
  Report Type: Spontaneous
  Country: US (occurrence: US)
  Receive Date: 20170411
  Receipt Date: 20170411
  Transmission Date: 20170830
  Serious: No
  Sender: FDA-Public Use
  Company Number: US-ALLERGAN-1703234US

PATIENT
  Sex: Female

DRUGS (1)
  1. OXYBUTYNIN UNK [Suspect]
     Active Substance: OXYBUTYNIN
     Indication: HYPERTONIC BLADDER

REACTIONS (3)
  - Dry mouth [Recovered/Resolved]
  - Constipation [Recovered/Resolved]
  - Urinary tract infection [Unknown]
